FAERS Safety Report 5991383-X (Version None)
Quarter: 2008Q4

REPORT INFORMATION
  Report Type: 
  Country: None (occurrence: None)
  Receive Date: 20081202
  Receipt Date: 20080122
  Transmission Date: 20090506
  Serious: Yes (Disabling)
  Sender: FDA-Public Use
  Company Number: WAES 0801USA04597

PATIENT
  Age: 79 Year
  Sex: Female
  Weight: 63.9572 kg

DRUGS (8)
  1. FOSAMAX [Suspect]
     Indication: OSTEOPOROSIS
     Dosage: 70 MG/WKY/PO
     Route: 048
     Dates: start: 20071213, end: 20071223
  2. EFFEXOR [Concomitant]
  3. SYNTHROID [Concomitant]
  4. WELLBUTRIN [Concomitant]
  5. CALCIUM (UNSPECIFIED) [Concomitant]
  6. LORAZEPAM [Concomitant]
  7. TRANDOLAPRIL [Concomitant]
  8. VITAMINS (UNSPECIFIED) [Concomitant]

REACTIONS (1)
  - DYSPEPSIA [None]
